FAERS Safety Report 8847285 (Version 5)
Quarter: 2013Q2

REPORT INFORMATION
  Report Type: Spontaneous
  Country: US (occurrence: US)
  Receive Date: 20121018
  Receipt Date: 20130625
  Transmission Date: 20140414
  Serious: Yes (Hospitalization, Other)
  Sender: FDA-Public Use
  Company Number: US-009507513-1201USA00878

PATIENT
  Sex: Female
  Weight: 80.27 kg

DRUGS (5)
  1. FOSAMAX [Suspect]
     Dosage: 70 MG, QW
     Route: 048
     Dates: start: 20010922
  2. FOSAMAX [Suspect]
     Dosage: 10 MG, QD
     Route: 048
     Dates: start: 20010307, end: 20010514
  3. ALENDRONATE SODIUM [Suspect]
     Dosage: 70 MG, QW
     Route: 048
     Dates: start: 20080228, end: 20100311
  4. CALCIUM (UNSPECIFIED) (+) VITAMIN D (UNSPECIFIED) [Concomitant]
     Dosage: 500 MG, QD
     Dates: start: 2005
  5. ZOLOFT [Concomitant]
     Indication: DEPRESSION
     Dosage: 50 MG, QD

REACTIONS (15)
  - Femur fracture [Unknown]
  - Fall [Unknown]
  - Intramedullary rod insertion [Unknown]
  - Thyroid nodule removal [Unknown]
  - Sleep apnoea syndrome [Unknown]
  - Spinal osteoarthritis [Unknown]
  - Thyroid neoplasm [Unknown]
  - Chest pain [Recovered/Resolved]
  - Anxiety [Unknown]
  - Psoriasis [Unknown]
  - Vitiligo [Unknown]
  - Urinary incontinence [Unknown]
  - Atrophic vulvovaginitis [Unknown]
  - Tendonitis [Unknown]
  - Gastrooesophageal reflux disease [Unknown]
